FAERS Safety Report 12691940 (Version 1)
Quarter: 2016Q3

REPORT INFORMATION
  Report Type: Spontaneous
  Country: US (occurrence: US)
  Receive Date: 20160827
  Receipt Date: 20160827
  Transmission Date: 20161109
  Serious: Yes (Hospitalization, Other)
  Sender: FDA-Public Use
  Company Number: US-AMGEN-USASP2016111247

PATIENT
  Sex: Female

DRUGS (1)
  1. KYPROLIS [Suspect]
     Active Substance: CARFILZOMIB
     Indication: PLASMA CELL MYELOMA
     Dosage: UNK MG/M2, UNK
     Route: 065

REACTIONS (3)
  - Liver function test increased [Recovered/Resolved]
  - Hospitalisation [Unknown]
  - Blood bilirubin increased [Recovered/Resolved]
